FAERS Safety Report 15845420 (Version 2)
Quarter: 2019Q1

REPORT INFORMATION
  Report Type: Spontaneous
  Country: AT (occurrence: AT)
  Receive Date: 20190119
  Receipt Date: 20190212
  Transmission Date: 20190417
  Serious: Yes (Other)
  Sender: FDA-Public Use
  Company Number: PHHY2018AT182654

PATIENT
  Age: 61 Year
  Sex: Female

DRUGS (10)
  1. MEKINIST [Suspect]
     Active Substance: TRAMETINIB DIMETHYL SULFOXIDE
     Indication: LUNG ADENOCARCINOMA
     Dosage: 2 MG, QD
     Route: 065
     Dates: start: 20160728, end: 20160804
  2. CYRAMZA [Suspect]
     Active Substance: RAMUCIRUMAB
     Indication: LUNG ADENOCARCINOMA
     Dosage: UNK
     Route: 065
     Dates: start: 201706, end: 201708
  3. TAFINLAR [Suspect]
     Active Substance: DABRAFENIB MESYLATE
     Indication: LUNG ADENOCARCINOMA
     Dosage: 150 MG, BID
     Route: 065
     Dates: start: 20160728, end: 20160804
  4. TAFINLAR [Suspect]
     Active Substance: DABRAFENIB MESYLATE
     Dosage: 50 MG, BID
     Route: 065
  5. DOCETAXEL. [Suspect]
     Active Substance: DOCETAXEL
     Indication: LUNG ADENOCARCINOMA
     Dosage: 75 MG/M2, EVERY 21 DAYS
     Route: 065
     Dates: start: 201706, end: 201708
  6. TECENTRIQ [Suspect]
     Active Substance: ATEZOLIZUMAB
     Indication: LUNG ADENOCARCINOMA
     Dosage: 1200 MG, UNK
     Route: 065
     Dates: start: 201805, end: 201807
  7. TAFINLAR [Suspect]
     Active Substance: DABRAFENIB MESYLATE
     Dosage: 50 MG, BID
     Route: 065
     Dates: start: 20180822
  8. LIXIANA [Concomitant]
     Active Substance: EDOXABAN TOSYLATE
     Indication: ANTICOAGULANT THERAPY
     Dosage: UNK
     Route: 065
     Dates: start: 201804
  9. MEKINIST [Suspect]
     Active Substance: TRAMETINIB DIMETHYL SULFOXIDE
     Dosage: 0.5 MG, QD
     Route: 065
     Dates: start: 20180822
  10. MEKINIST [Suspect]
     Active Substance: TRAMETINIB DIMETHYL SULFOXIDE
     Dosage: 0.5 MG, QD
     Route: 065

REACTIONS (11)
  - Pneumonia [Recovered/Resolved]
  - Splenomegaly [Unknown]
  - Pneumonia [Recovered/Resolved]
  - Malignant neoplasm progression [Recovering/Resolving]
  - Febrile infection [Unknown]
  - Pneumonia [Recovered/Resolved]
  - Lung adenocarcinoma [Recovering/Resolving]
  - Pyrexia [Recovering/Resolving]
  - Haemangioma of bone [Unknown]
  - Febrile infection [Unknown]
  - Product use in unapproved indication [Unknown]

NARRATIVE: CASE EVENT DATE: 20170616
